FAERS Safety Report 6825234-8 (Version None)
Quarter: 2010Q3

REPORT INFORMATION
  Report Type: 
  Country: None (occurrence: None)
  Receive Date: 20100708
  Receipt Date: 20070224
  Transmission Date: 20110219
  Serious: No
  Sender: FDA-Public Use
  Company Number: US-PFIZER INC-2007002857

PATIENT
  Sex: Female
  Weight: 58.97 kg

DRUGS (8)
  1. CHANTIX [Suspect]
     Indication: SMOKING CESSATION THERAPY
     Dates: start: 20061201
  2. PHENAZOPYRIDINE HCL TAB [Concomitant]
  3. SYNTHROID [Concomitant]
  4. DYAZIDE [Concomitant]
  5. SEROQUEL [Concomitant]
  6. AVELOX [Concomitant]
  7. DIAZEPAM [Concomitant]
     Indication: NAUSEA
  8. PROVIGIL [Concomitant]

REACTIONS (4)
  - DRUG INEFFECTIVE [None]
  - NAUSEA [None]
  - RHINORRHOEA [None]
  - SINUS DISORDER [None]
